FAERS Safety Report 13621656 (Version 1)
Quarter: 2017Q2

REPORT INFORMATION
  Report Type: Spontaneous
  Country: US (occurrence: US)
  Receive Date: 20170607
  Receipt Date: 20170607
  Transmission Date: 20170830
  Serious: No
  Sender: FDA-Public Use
  Company Number: US-ROCHE-1782389

PATIENT
  Age: 71 Year
  Sex: Female
  Weight: 51.71 kg

DRUGS (6)
  1. CLONAZEPAM. [Suspect]
     Active Substance: CLONAZEPAM
     Indication: ANXIETY
     Dosage: BEEN TAKING FOR YEARS. IT IS PRESCRIBED FOR TWICE A DAY, BUT SHE GENERALLY TAKES?IT ONCE.
     Route: 048
  2. CETIRIZINE [Concomitant]
     Active Substance: CETIRIZINE HYDROCHLORIDE
     Dosage: TAKING FOR FLARE UPS ON HER FACE.?24 HOUR ANTIHISTAMINE. BEEN TAKING FOR 2 TO 3 MONTHS.
     Route: 048
  3. PRAVASTATIN SODIUM. [Concomitant]
     Active Substance: PRAVASTATIN SODIUM
     Indication: BLOOD CHOLESTEROL
     Dosage: BEEN TAKING ABOUT 3 TO 4 YEARS
     Route: 048
  4. HYDROXYZINE [Concomitant]
     Active Substance: HYDROXYZINE HYDROCHLORIDE
     Dosage: TAKING FOR FLARE UPS ON HER FACE.?24 HOUR ANTIHISTAMINE. BEEN TAKING FOR 2 TO 3 MONTHS.
     Route: 048
  5. PREMARIN [Suspect]
     Active Substance: ESTROGENS, CONJUGATED
     Indication: VULVOVAGINAL DRYNESS
     Route: 067
     Dates: start: 201604
  6. DOXYCYCLINE. [Concomitant]
     Active Substance: DOXYCYCLINE
     Dosage: BEEN TAKING IT 3 TO 4 MONTHS, STARTED IN DECEMBER
     Route: 048

REACTIONS (4)
  - Urinary tract infection [Recovered/Resolved]
  - Vaginal laceration [Unknown]
  - Intentional product misuse [Unknown]
  - Vulvovaginal discomfort [Not Recovered/Not Resolved]

NARRATIVE: CASE EVENT DATE: 201605
